FAERS Safety Report 13304014 (Version 5)
Quarter: 2018Q2

REPORT INFORMATION
  Report Type: Report from Study
  Country: CA (occurrence: CA)
  Receive Date: 20170307
  Receipt Date: 20180522
  Transmission Date: 20180711
  Serious: Yes (Other)
  Sender: FDA-Public Use
  Company Number: PHHY2016CA172483

PATIENT
  Age: 60 Year
  Sex: Female

DRUGS (1)
  1. GILENYA [Suspect]
     Active Substance: FINGOLIMOD HYDROCHLORIDE
     Indication: PRODUCT USED FOR UNKNOWN INDICATION
     Dosage: UNK
     Route: 048
     Dates: start: 20161128

REACTIONS (17)
  - Neck pain [Unknown]
  - Hemiparesis [Unknown]
  - Cognitive disorder [Unknown]
  - Fatigue [Unknown]
  - Muscle spasms [Unknown]
  - Anxiety [Unknown]
  - Panic attack [Unknown]
  - Feeling abnormal [Unknown]
  - Crying [Unknown]
  - Furuncle [Unknown]
  - Disturbance in attention [Unknown]
  - Diarrhoea [Unknown]
  - Upper respiratory fungal infection [Unknown]
  - Malaise [Unknown]
  - Oral lichen planus [Unknown]
  - Back pain [Unknown]
  - Abdominal discomfort [Unknown]

NARRATIVE: CASE EVENT DATE: 201702
